FAERS Safety Report 14378383 (Version 1)
Quarter: 2018Q1

REPORT INFORMATION
  Report Type: Spontaneous
  Country: US (occurrence: US)
  Receive Date: 20180111
  Receipt Date: 20180111
  Transmission Date: 20180509
  Serious: Yes (Disabling, Other)
  Sender: FDA-Public Use
  Company Number: US-SA-2018SA005089

PATIENT
  Age: 65 Year
  Sex: Female

DRUGS (1)
  1. LANTUS [Suspect]
     Active Substance: INSULIN GLARGINE
     Indication: TYPE 1 DIABETES MELLITUS
     Dosage: WAS TAKING MEDICINE SINCE 11 YEARS
     Route: 051

REACTIONS (4)
  - Glycosylated haemoglobin increased [Unknown]
  - Mental impairment [Unknown]
  - Disability [Unknown]
  - Blood glucose decreased [Unknown]
